FAERS Safety Report 14053531 (Version 1)
Quarter: 2017Q4

REPORT INFORMATION
  Report Type: Spontaneous
  Country: US (occurrence: US)
  Receive Date: 20171006
  Receipt Date: 20171006
  Transmission Date: 20180321
  Serious: No
  Sender: FDA-Public Use
  Company Number: US-JNJFOC-20170811612

PATIENT
  Sex: Female

DRUGS (1)
  1. NECON [Suspect]
     Active Substance: ETHINYL ESTRADIOL\NORETHINDRONE
     Indication: VAGINAL HAEMORRHAGE
     Dosage: DRUG ADMINISTRATION STARTED TWO DAYS AGO FROM THIS REPORT
     Route: 065

REACTIONS (2)
  - Contraindicated product administered [Unknown]
  - Off label use [Unknown]
